FAERS Safety Report 6159634-9 (Version None)
Quarter: 2009Q2

REPORT INFORMATION
  Report Type: 
  Country: None (occurrence: None)
  Receive Date: 20090420
  Receipt Date: 20090415
  Transmission Date: 20091009
  Serious: Yes (Hospitalization, Other)
  Sender: FDA-Public Use
  Company Number: JP-JNJFOC-20090307000

PATIENT
  Sex: Female
  Weight: 55 kg

DRUGS (7)
  1. RISPERDAL [Suspect]
     Indication: DRUG USE FOR UNKNOWN INDICATION
     Dosage: 1 ML AT BEDTIME
     Route: 048
  2. LEVOTOMIN [Suspect]
     Route: 048
  3. LEVOTOMIN [Suspect]
     Route: 048
  4. LEVOTOMIN [Suspect]
     Indication: DRUG USE FOR UNKNOWN INDICATION
     Route: 048
  5. ARICEPT [Concomitant]
     Route: 048
  6. MYSLEE [Concomitant]
     Route: 048
  7. AMOBAN [Concomitant]
     Route: 048

REACTIONS (5)
  - FAECAL INCONTINENCE [None]
  - HYPONATRAEMIA [None]
  - IMMOBILE [None]
  - TREMOR [None]
  - VOMITING [None]
